FAERS Safety Report 10103018 (Version 1)
Quarter: 2014Q2

REPORT INFORMATION
  Report Type: Spontaneous
  Country: US (occurrence: US)
  Receive Date: 20140424
  Receipt Date: 20140424
  Transmission Date: 20141212
  Serious: Yes (Other)
  Sender: FDA-Public Use
  Company Number: US-BRISTOL-MYERS SQUIBB COMPANY-20071999

PATIENT
  Age: 88 Year
  Sex: Male
  Weight: 83.9 kg

DRUGS (1)
  1. ELIQUIS [Suspect]
     Dosage: 2 DOSES

REACTIONS (3)
  - Haemorrhage urinary tract [Unknown]
  - Rectal haemorrhage [Unknown]
  - Contusion [Unknown]
